FAERS Safety Report 12132405 (Version 1)
Quarter: 2016Q1

REPORT INFORMATION
  Report Type: Spontaneous
  Country: UY (occurrence: UY)
  Receive Date: 20160301
  Receipt Date: 20160301
  Transmission Date: 20160526
  Serious: Yes (Hospitalization)
  Sender: FDA-Public Use
  Company Number: UY-ELI_LILLY_AND_COMPANY-UY201602010196

PATIENT
  Age: 0 Day
  Sex: Female
  Weight: 1.67 kg

DRUGS (2)
  1. INSULIN HUMAN [Suspect]
     Active Substance: INSULIN HUMAN
     Indication: GESTATIONAL DIABETES
     Dosage: UNK, UNKNOWN
     Route: 065
     Dates: start: 20120201, end: 20120301
  2. HUMALOG [Suspect]
     Active Substance: INSULIN LISPRO
     Indication: GESTATIONAL DIABETES
     Dosage: UNK, UNKNOWN
     Route: 065
     Dates: start: 20120201, end: 20120301

REACTIONS (4)
  - Premature baby [Unknown]
  - Pulmonary oedema [Recovered/Resolved]
  - Underweight [Recovered/Resolved]
  - Immature respiratory system [Recovered/Resolved]

NARRATIVE: CASE EVENT DATE: 20120301
